FAERS Safety Report 6046611-1 (Version None)
Quarter: 2009Q1

REPORT INFORMATION
  Report Type: 
  Country: None (occurrence: None)
  Receive Date: 20090122
  Receipt Date: 20090114
  Transmission Date: 20090719
  Serious: Yes (Hospitalization)
  Sender: FDA-Public Use
  Company Number: PHHY2009FR01462

PATIENT
  Age: 48 Year
  Sex: Female

DRUGS (4)
  1. EXELON [Suspect]
     Route: 062
  2. EBIXA [Suspect]
     Dosage: 2 DF
  3. LEVOTHYROX [Concomitant]
  4. GARDENAL ^AVENTIS^ [Concomitant]

REACTIONS (3)
  - DERMATITIS BULLOUS [None]
  - PURPURA [None]
  - THROMBOCYTOPENIA [None]
